FAERS Safety Report 18130098 (Version 1)
Quarter: 2020Q3

REPORT INFORMATION
  Report Type: Report from Study
  Country: IT (occurrence: IT)
  Receive Date: 20200810
  Receipt Date: 20200810
  Transmission Date: 20201103
  Serious: Yes (Death)
  Sender: FDA-Public Use
  Company Number: IT-TEVA-2020-IT-1811028

PATIENT
  Age: 70 Year
  Sex: Male

DRUGS (19)
  1. OMEPRAZOLE. [Concomitant]
     Active Substance: OMEPRAZOLE
  2. MIDAZOLAM. [Concomitant]
     Active Substance: MIDAZOLAM
  3. MEROPENEM. [Concomitant]
     Active Substance: MEROPENEM
  4. TOCILIZUMAB. [Concomitant]
     Active Substance: TOCILIZUMAB
  5. VANCOMYCIN [Concomitant]
     Active Substance: VANCOMYCIN
  6. ARIXTRA 7.5 MG/0.6?ML SOLUTION FOR INJECTION, PRE?FILLED SYRINGE [Concomitant]
  7. QUETIAPINE. [Suspect]
     Active Substance: QUETIAPINE
     Indication: AGITATION
     Dosage: 450MG
     Route: 065
     Dates: start: 20200326, end: 20200503
  8. HYDROXYCHLOROQUINE SULFATE. [Concomitant]
     Active Substance: HYDROXYCHLOROQUINE SULFATE
  9. FLUCONAZOLE. [Concomitant]
     Active Substance: FLUCONAZOLE
  10. PIPERACILLINA SODICA E TAZOBACTAM SODICO STERILI (MISCELA 8:1) [Concomitant]
  11. DEXAMETHASONE. [Concomitant]
     Active Substance: DEXAMETHASONE
  12. HALOPERIDOL. [Concomitant]
     Active Substance: HALOPERIDOL
  13. METHYLPREDNISOLONE. [Concomitant]
     Active Substance: METHYLPREDNISOLONE
  14. AMIODARONE [Concomitant]
     Active Substance: AMIODARONE
  15. DARUNAVIR [Concomitant]
     Active Substance: DARUNAVIR
  16. HYDROCORTISONE ACETATE. [Concomitant]
     Active Substance: HYDROCORTISONE ACETATE
  17. CLEXANE T [Concomitant]
     Active Substance: ENOXAPARIN SODIUM
  18. CEFTRIAXONE. [Concomitant]
     Active Substance: CEFTRIAXONE
  19. RITONAVIR. [Concomitant]
     Active Substance: RITONAVIR

REACTIONS (1)
  - Anaemia macrocytic [Fatal]

NARRATIVE: CASE EVENT DATE: 20200326
